FAERS Safety Report 17126606 (Version 2)
Quarter: 2020Q2

REPORT INFORMATION
  Report Type: Spontaneous
  Country: US (occurrence: US)
  Receive Date: 20191209
  Receipt Date: 20200529
  Transmission Date: 20200713
  Serious: No
  Sender: FDA-Public Use
  Company Number: US-UCBSA-2017008487

PATIENT
  Age: 48 Year
  Sex: Female

DRUGS (1)
  1. CIMZIA [Suspect]
     Active Substance: CERTOLIZUMAB PEGOL
     Indication: PRODUCT USED FOR UNKNOWN INDICATION
     Dosage: 2X200 MG

REACTIONS (6)
  - Vomiting [Unknown]
  - Loss of consciousness [Unknown]
  - Blood magnesium decreased [Unknown]
  - Injection site reaction [Unknown]
  - Product physical consistency issue [Unknown]
  - Diarrhoea [Unknown]

NARRATIVE: CASE EVENT DATE: 20170101
